FAERS Safety Report 5033539-9 (Version None)
Quarter: 2006Q2

REPORT INFORMATION
  Report Type: 
  Country: None (occurrence: None)
  Receive Date: 20060518
  Receipt Date: 20050623
  Transmission Date: 20061013
  Serious: Yes (Other)
  Sender: FDA-Public Use
  Company Number: 2005003958

PATIENT
  Age: 25 Year
  Sex: Female
  Weight: 89.8122 kg

DRUGS (1)
  1. DEPO-PROVERA [Suspect]
     Indication: CONTRACEPTION
     Dosage: 150 MG (150 MG,SINGLE INJECTION),INTRAMUSCULAR
     Route: 030
     Dates: start: 20041009, end: 20041009

REACTIONS (1)
  - UNINTENDED PREGNANCY [None]
